FAERS Safety Report 4940813-0 (Version None)
Quarter: 2006Q1

REPORT INFORMATION
  Report Type: 
  Country: None (occurrence: None)
  Receive Date: 20060313
  Receipt Date: 20060220
  Transmission Date: 20060701
  Serious: Yes (Hospitalization)
  Sender: FDA-Public Use
  Company Number: PHEH2006US02331

PATIENT
  Age: 6 Week
  Sex: Male

DRUGS (1)
  1. ELIDEL [Suspect]
     Indication: RASH
     Dosage: UNK, UNK
     Route: 061
     Dates: start: 20041001

REACTIONS (2)
  - PNEUMONITIS [None]
  - RESPIRATORY FAILURE [None]
